FAERS Safety Report 5458018-6 (Version None)
Quarter: 2007Q3

REPORT INFORMATION
  Report Type: 
  Country: None (occurrence: None)
  Receive Date: 20070917
  Receipt Date: 20070830
  Transmission Date: 20080115
  Serious: Yes (Other)
  Sender: FDA-Public Use
  Company Number: 8026548

PATIENT
  Age: 15 Year
  Sex: Male

DRUGS (1)
  1. METHYLPHENIDATE HCL [Suspect]
     Dosage: 36 MG
     Dates: start: 20070201

REACTIONS (2)
  - CONDITION AGGRAVATED [None]
  - DIZZINESS POSTURAL [None]
